FAERS Safety Report 11411967 (Version 1)
Quarter: 2015Q3

REPORT INFORMATION
  Report Type: Spontaneous
  Country: US (occurrence: US)
  Receive Date: 20150821
  Receipt Date: 20150821
  Transmission Date: 20151125
  Serious: No
  Sender: FDA-Public Use
  Company Number: US-ELI_LILLY_AND_COMPANY-US201201000600

PATIENT
  Age: 58 Year
  Sex: Male

DRUGS (3)
  1. HUMULIN R [Suspect]
     Active Substance: INSULIN HUMAN
     Indication: DIABETES MELLITUS
     Dosage: 5 U, UNKNOWN
     Dates: start: 201108
  2. LANTUS [Concomitant]
     Active Substance: INSULIN GLARGINE
     Indication: DIABETES MELLITUS
     Dosage: 26 U, OTHER
  3. BYETTA [Concomitant]
     Active Substance: EXENATIDE
     Indication: DIABETES MELLITUS
     Dosage: UNK
     Dates: end: 201108

REACTIONS (14)
  - Glycosylated haemoglobin increased [Unknown]
  - Limb injury [Unknown]
  - Pain in extremity [Unknown]
  - Dizziness postural [Unknown]
  - Headache [Unknown]
  - Decreased appetite [Unknown]
  - Rash erythematous [Unknown]
  - Weight decreased [Unknown]
  - Abdominal discomfort [Unknown]
  - Eye disorder [Unknown]
  - Sleep disorder [Unknown]
  - Irritability [Unknown]
  - Blood glucose increased [Unknown]
  - Mood altered [Unknown]

NARRATIVE: CASE EVENT DATE: 20111215
